FAERS Safety Report 9511561 (Version 2)
Quarter: 2014Q1

REPORT INFORMATION
  Report Type: Spontaneous
  Country: CH (occurrence: None)
  Receive Date: 20130906
  Receipt Date: 20140115
  Transmission Date: 20141002
  Serious: Yes (Other)
  Sender: FDA-Public Use
  Company Number: 20130474

PATIENT
  Age: 20 Year
  Sex: Female

DRUGS (5)
  1. FERINJECT [Suspect]
     Indication: IRON DEFICIENCY ANAEMIA
     Dosage: 1 IN 2 D
     Route: 041
     Dates: start: 20130318, end: 20130325
  2. OBSIDAN (FERROUS GLYCINE SULFATE) [Concomitant]
  3. MALTOFERRIN [Concomitant]
  4. MIRTAZAPINE [Suspect]
     Indication: DEPRESSION
  5. RED BLOOD CELLS [Concomitant]

REACTIONS (14)
  - Malaise [None]
  - Dizziness [None]
  - Premature separation of placenta [None]
  - Bradycardia foetal [None]
  - Caesarean section [None]
  - Maternal drugs affecting foetus [None]
  - Fatigue [None]
  - Vision blurred [None]
  - Skin lesion [None]
  - Asthenia [None]
  - Arthropathy [None]
  - Nausea [None]
  - Vomiting [None]
  - Maternal exposure during pregnancy [None]
